FAERS Safety Report 10206850 (Version 3)
Quarter: 2015Q3

REPORT INFORMATION
  Report Type: Spontaneous
  Country: US (occurrence: US)
  Receive Date: 20140530
  Receipt Date: 20150810
  Transmission Date: 20151125
  Serious: Yes (Hospitalization, Disabling, Other)
  Sender: FDA-Public Use
  Company Number: US-009507513-1405USA011548

PATIENT
  Sex: Female

DRUGS (4)
  1. CENTRUM SILVER [Concomitant]
     Active Substance: VITAMINS
     Dosage: 1 DF, QD
     Route: 048
     Dates: start: 1991
  2. ALENDRONATE SODIUM. [Suspect]
     Active Substance: ALENDRONATE SODIUM
     Indication: OSTEOPOROSIS
     Dosage: 70 MG, QW
     Route: 048
     Dates: start: 200908, end: 201205
  3. ALENDRONATE SODIUM. [Suspect]
     Active Substance: ALENDRONATE SODIUM
     Indication: OSTEOPENIA
     Dosage: 70 MG, QW
     Route: 048
     Dates: start: 200803, end: 200903
  4. FOSAMAX [Suspect]
     Active Substance: ALENDRONATE SODIUM
     Indication: OSTEOPENIA
     Dosage: 70 MG, QW
     Route: 048
     Dates: start: 2005, end: 200803

REACTIONS (15)
  - Oophorectomy [Unknown]
  - Hypertension [Unknown]
  - Femur fracture [Not Recovered/Not Resolved]
  - Anaemia [Unknown]
  - Rhinitis allergic [Unknown]
  - Osteoarthritis [Unknown]
  - Osteoporosis [Not Recovered/Not Resolved]
  - Femur fracture [Recovering/Resolving]
  - Hypercholesterolaemia [Unknown]
  - Hypercalcaemia [Unknown]
  - Muscle strain [Unknown]
  - Peripheral vascular disorder [Unknown]
  - Fall [Unknown]
  - Hip fracture [Unknown]
  - Forearm fracture [Unknown]

NARRATIVE: CASE EVENT DATE: 2010
